FAERS Safety Report 8114960 (Version 4)
Quarter: 2022Q4

REPORT INFORMATION
  Report Type: Spontaneous
  Country: US (occurrence: None)
  Receive Date: 20110831
  Receipt Date: 20221116
  Transmission Date: 20230112
  Serious: Yes (Hospitalization, Other)
  Sender: FDA-Public Use
  Company Number: US-ROCHE-798783

PATIENT
  Age: 55 Year
  Sex: Female

DRUGS (3)
  1. BONIVA [Suspect]
     Active Substance: IBANDRONATE SODIUM
     Indication: Osteoporosis
     Route: 065
     Dates: start: 2006, end: 2009
  2. FOSAMAX [Suspect]
     Active Substance: ALENDRONATE SODIUM
     Indication: Osteoporosis
     Route: 065
     Dates: start: 2004, end: 2006
  3. ACTONEL [Suspect]
     Active Substance: RISEDRONATE SODIUM
     Indication: Osteoporosis
     Route: 065
     Dates: start: 2004

REACTIONS (10)
  - Femur fracture [Unknown]
  - Low turnover osteopathy [Unknown]
  - Osteogenesis imperfecta [Unknown]
  - Femur fracture [Unknown]
  - Emotional distress [Unknown]
  - Anxiety [Unknown]
  - Upper limb fracture [Unknown]
  - Muscle spasms [Unknown]
  - Back pain [Unknown]
  - Muscular weakness [Unknown]

NARRATIVE: CASE EVENT DATE: 20090603
